FAERS Safety Report 17187214 (Version 2)
Quarter: 2021Q4

REPORT INFORMATION
  Report Type: Spontaneous
  Country: US (occurrence: US)
  Receive Date: 20191220
  Receipt Date: 20211206
  Transmission Date: 20220303
  Serious: Yes (Other)
  Sender: FDA-Public Use
  Company Number: US-BAUSCH-BL-2019-065625

PATIENT
  Age: 47 Year
  Sex: Male
  Weight: 86.260 kg

DRUGS (2)
  1. VISUDYNE [Suspect]
     Active Substance: VERTEPORFIN
     Indication: Chorioretinopathy
     Route: 042
     Dates: start: 20191216, end: 20191216
  2. VISUDYNE [Suspect]
     Active Substance: VERTEPORFIN
     Indication: Product use in unapproved indication
     Route: 042
     Dates: start: 20191219, end: 20191219

REACTIONS (2)
  - Loss of consciousness [Recovered/Resolved]
  - Product use in unapproved indication [Unknown]

NARRATIVE: CASE EVENT DATE: 20191216
